FAERS Safety Report 9719172 (Version 1)
Quarter: 2013Q4

REPORT INFORMATION
  Report Type: Spontaneous
  Country: US (occurrence: US)
  Receive Date: 20131127
  Receipt Date: 20131127
  Transmission Date: 20140711
  Serious: Yes (Other)
  Sender: FDA-Public Use
  Company Number: CHPA2013US017429

PATIENT
  Age: 71 Year
  Sex: Female

DRUGS (4)
  1. ASCRIPTIN BUFFERED REG STRENGTH TABLETS [Suspect]
     Indication: ARTHRITIS
     Dosage: 1 UNK, QD
     Route: 048
     Dates: end: 201302
  2. WARFARIN [Suspect]
     Indication: ATRIAL FIBRILLATION
     Dosage: UNK
     Dates: start: 2012
  3. WARFARIN [Suspect]
     Indication: THROMBOSIS
  4. SYNTHROID [Concomitant]
     Indication: THYROID DISORDER

REACTIONS (8)
  - Cerebrovascular accident [Recovering/Resolving]
  - Thrombosis [Unknown]
  - Atrial fibrillation [Recovering/Resolving]
  - Blood pressure increased [Unknown]
  - Drug level fluctuating [Unknown]
  - Incorrect drug administration duration [Unknown]
  - Underdose [Unknown]
  - Expired drug administered [Unknown]
